FAERS Safety Report 20837795 (Version 1)
Quarter: 2022Q2

REPORT INFORMATION
  Report Type: Report from Study
  Country: US (occurrence: US)
  Receive Date: 20220517
  Receipt Date: 20220517
  Transmission Date: 20220720
  Serious: Yes (Hospitalization, Other)
  Sender: FDA-Public Use
  Company Number: US-UNITED THERAPEUTICS-UNT-2022-010329

PATIENT
  Age: 45 Year
  Sex: Female
  Weight: 57.596 kg

DRUGS (2)
  1. TREPROSTINIL SODIUM [Suspect]
     Active Substance: TREPROSTINIL SODIUM
     Indication: Pulmonary arterial hypertension
     Dosage: UNK
     Dates: start: 20220414
  2. TREPROSTINIL SODIUM [Suspect]
     Active Substance: TREPROSTINIL SODIUM
     Dosage: 18-72 ?G, QID

REACTIONS (6)
  - Loss of consciousness [Unknown]
  - Lung disorder [Unknown]
  - Electrocardiogram T wave abnormal [Unknown]
  - Hypotension [Unknown]
  - Tinnitus [Unknown]
  - Epistaxis [Unknown]

NARRATIVE: CASE EVENT DATE: 20220501
